FAERS Safety Report 23180423 (Version 1)
Quarter: 2023Q4

REPORT INFORMATION
  Report Type: Spontaneous
  Country: US (occurrence: US)
  Receive Date: 20231114
  Receipt Date: 20231114
  Transmission Date: 20240109
  Serious: No
  Sender: FDA-Public Use
  Company Number: US-JNJFOC-20231053319

PATIENT
  Sex: Female

DRUGS (2)
  1. IMODIUM A-D [Suspect]
     Active Substance: LOPERAMIDE HYDROCHLORIDE
     Indication: Adverse drug reaction
     Route: 048
  2. OTEZLA [Concomitant]
     Active Substance: APREMILAST
     Indication: Pustular psoriasis
     Route: 065

REACTIONS (4)
  - Product package associated injury [Unknown]
  - Therapeutic response unexpected [Unknown]
  - Product use in unapproved indication [Unknown]
  - Product container issue [Unknown]
